FAERS Safety Report 11213523 (Version 3)
Quarter: 2015Q3

REPORT INFORMATION
  Report Type: Report from Study
  Country: CA (occurrence: CA)
  Receive Date: 20150623
  Receipt Date: 20150811
  Transmission Date: 20151125
  Serious: Yes (Death, Hospitalization, Other)
  Sender: FDA-Public Use
  Company Number: PHHY2015CA074115

PATIENT
  Age: 65 Year
  Sex: Female

DRUGS (4)
  1. SANDOSTATIN [Suspect]
     Active Substance: OCTREOTIDE ACETATE
     Indication: OVARIAN CANCER
     Dosage: 100 UG, BID FOR 2 WEEKS
     Route: 058
     Dates: start: 20150514
  2. SANDOSTATIN LAR DEPOT [Suspect]
     Active Substance: OCTREOTIDE ACETATE
     Indication: SUBILEUS
  3. SANDOSTATIN [Suspect]
     Active Substance: OCTREOTIDE ACETATE
     Indication: SUBILEUS
  4. SANDOSTATIN LAR DEPOT [Suspect]
     Active Substance: OCTREOTIDE ACETATE
     Indication: OVARIAN CANCER
     Dosage: 20 MG, QMO (ONCE A MONTH)
     Route: 030
     Dates: start: 20150512, end: 20150708

REACTIONS (11)
  - Asthenia [Unknown]
  - Diarrhoea [Unknown]
  - Abdominal pain upper [Unknown]
  - Pain in extremity [Unknown]
  - Contusion [Unknown]
  - Vomiting [Unknown]
  - Gait disturbance [Unknown]
  - Off label use [Unknown]
  - Death [Fatal]
  - Monoplegia [Unknown]
  - Abdominal discomfort [Unknown]

NARRATIVE: CASE EVENT DATE: 2015
